FAERS Safety Report 4892598-4 (Version None)
Quarter: 2006Q1

REPORT INFORMATION
  Report Type: 
  Country: None (occurrence: None)
  Receive Date: 20060126
  Receipt Date: 20060119
  Transmission Date: 20060701
  Serious: Yes (Other)
  Sender: FDA-Public Use
  Company Number: US-JNJFOC-20060104263

PATIENT
  Sex: Male

DRUGS (5)
  1. INFLIXIMAB [Suspect]
     Indication: RHEUMATOID ARTHRITIS
     Route: 042
  2. METHOTREXATE [Concomitant]
  3. LISINOPRIL [Concomitant]
  4. PROPOXYPHENE HYDROCHLORIDE CAP [Concomitant]
  5. FOLIC ACID [Concomitant]

REACTIONS (1)
  - TUBERCULOSIS [None]
